FAERS Safety Report 4560096-3 (Version None)
Quarter: 2005Q1

REPORT INFORMATION
  Report Type: 
  Country: None (occurrence: None)
  Receive Date: 20050119
  Receipt Date: 20050107
  Transmission Date: 20050727
  Serious: Yes (Hospitalization)
  Sender: FDA-Public Use
  Company Number: 001-0981-M0003337

PATIENT
  Age: 68 Year
  Sex: Female
  Weight: 84.369 kg

DRUGS (9)
  1. ATORVASTATIN (ATORVASTATIN) [Suspect]
     Indication: HYPERLIPIDAEMIA
     Dosage: 10 MG DAILY, ORAL
     Route: 048
     Dates: start: 19980828, end: 19981022
  2. ATORVASTATIN (ATORVASTATIN) [Suspect]
     Indication: HYPERLIPIDAEMIA
     Dosage: 10 MG DAILY, ORAL
     Route: 048
     Dates: start: 19981023
  3. VITAMIN B12 [Concomitant]
  4. VITAMIN E [Concomitant]
  5. VITAMIN C (ASCORBIC ACID) [Concomitant]
  6. FOLIC ACID [Concomitant]
  7. NITROGLYCERIN [Concomitant]
  8. VENLAFAXINE HCL [Concomitant]
  9. VEAPAMIL (VERAPAMIL) [Concomitant]

REACTIONS (4)
  - CONDITION AGGRAVATED [None]
  - CYSTOCELE [None]
  - RECTOCELE [None]
  - UMBILICAL HERNIA [None]
